FAERS Safety Report 17672320 (Version 1)
Quarter: 2020Q2

REPORT INFORMATION
  Report Type: Spontaneous
  Country: US (occurrence: US)
  Receive Date: 20200415
  Receipt Date: 20200415
  Transmission Date: 20200713
  Serious: No
  Sender: FDA-Public Use
  Company Number: NVSC2020US082918

PATIENT
  Age: 17 Year
  Sex: Female

DRUGS (1)
  1. ALPELISIB [Suspect]
     Active Substance: ALPELISIB
     Indication: CONGENITAL ANOMALY
     Dosage: 100 MG, QD(REDUCED DOSE- 50 MG)
     Route: 048

REACTIONS (2)
  - Dizziness [Unknown]
  - Confusional state [Unknown]
